FAERS Safety Report 10428159 (Version 3)
Quarter: 2014Q3

REPORT INFORMATION
  Report Type: Spontaneous
  Country: GB (occurrence: GB)
  Receive Date: 20140903
  Receipt Date: 20140915
  Transmission Date: 20150326
  Serious: Yes (Other)
  Sender: FDA-Public Use
  Company Number: GB-PFIZER INC-2014240532

PATIENT
  Sex: Male

DRUGS (3)
  1. LORAZEPAM. [Concomitant]
     Active Substance: LORAZEPAM
  2. LYRICA [Suspect]
     Active Substance: PREGABALIN
     Dosage: UNK
  3. COCODAMOL [Concomitant]
     Active Substance: ACETAMINOPHEN\CODEINE PHOSPHATE

REACTIONS (9)
  - Malaise [Unknown]
  - Disturbance in attention [Unknown]
  - Dizziness [Unknown]
  - Increased appetite [Unknown]
  - Loss of consciousness [Unknown]
  - Product quality issue [Unknown]
  - Headache [Unknown]
  - Motor neurone disease [Unknown]
  - Reading disorder [Unknown]
